FAERS Safety Report 6937552-3 (Version None)
Quarter: 2010Q3

REPORT INFORMATION
  Report Type: 
  Country: None (occurrence: None)
  Receive Date: 20100823
  Receipt Date: 20100823
  Transmission Date: 20110219
  Serious: Yes (Hospitalization, Other)
  Sender: FDA-Public Use
  Company Number: None

PATIENT
  Age: 28 Year
  Sex: Female
  Weight: 88.905 kg

DRUGS (1)
  1. MIRENA [Suspect]
     Indication: CONTRACEPTION
     Dosage: 20 MCG DAY INTRA-UTERINE
     Route: 015
     Dates: start: 20090721, end: 20090819

REACTIONS (14)
  - ABDOMINAL PAIN [None]
  - ALOPECIA [None]
  - BLOOD THYROID STIMULATING HORMONE INCREASED [None]
  - BONE PAIN [None]
  - DEPRESSION [None]
  - DRY SKIN [None]
  - IRRITABILITY [None]
  - LOSS OF LIBIDO [None]
  - MOOD SWINGS [None]
  - MYALGIA [None]
  - SKIN DISORDER [None]
  - TEMPERATURE INTOLERANCE [None]
  - UNEVALUABLE EVENT [None]
  - WEIGHT INCREASED [None]
